FAERS Safety Report 14316732 (Version 3)
Quarter: 2018Q2

REPORT INFORMATION
  Report Type: Report from Study
  Country: None (occurrence: US)
  Receive Date: 20171222
  Receipt Date: 20180629
  Transmission Date: 20180711
  Serious: Yes (Hospitalization, Other)
  Sender: FDA-Public Use
  Company Number: US-ABBVIE-17K-163-2187211-00

PATIENT
  Age: 57 Year
  Sex: Female
  Weight: 119.4 kg

DRUGS (7)
  1. HUMIRA [Suspect]
     Active Substance: ADALIMUMAB
     Dosage: DOSE INCREASED
     Route: 058
     Dates: start: 201711
  2. PREDNISONE. [Suspect]
     Active Substance: PREDNISONE
     Indication: PRODUCT USED FOR UNKNOWN INDICATION
     Route: 065
  3. LOSARTAN. [Concomitant]
     Active Substance: LOSARTAN
     Indication: PRODUCT USED FOR UNKNOWN INDICATION
  4. HUMIRA [Suspect]
     Active Substance: ADALIMUMAB
     Indication: CROHN^S DISEASE
     Route: 058
     Dates: start: 201711, end: 201711
  5. VERAPAMIL [Concomitant]
     Active Substance: VERAPAMIL HYDROCHLORIDE
     Indication: PRODUCT USED FOR UNKNOWN INDICATION
  6. METFORMIN [Concomitant]
     Active Substance: METFORMIN HYDROCHLORIDE
     Indication: PRODUCT USED FOR UNKNOWN INDICATION
  7. HUMIRA [Suspect]
     Active Substance: ADALIMUMAB
     Indication: COLITIS ULCERATIVE
     Route: 058
     Dates: start: 2017, end: 201709

REACTIONS (15)
  - Condition aggravated [Recovering/Resolving]
  - Diarrhoea [Not Recovered/Not Resolved]
  - Crohn^s disease [Recovered/Resolved]
  - Procedural pain [Recovered/Resolved]
  - Pain [Recovered/Resolved]
  - Therapeutic response shortened [Recovering/Resolving]
  - Back pain [Recovered/Resolved]
  - Joint injury [Recovered/Resolved]
  - Abdominal pain [Recovered/Resolved]
  - Meniscus injury [Recovered/Resolved]
  - Colitis ulcerative [Recovered/Resolved]
  - Blood glucose increased [Not Recovered/Not Resolved]
  - Dehydration [Recovered/Resolved]
  - Asthenia [Not Recovered/Not Resolved]
  - Fall [Recovered/Resolved]

NARRATIVE: CASE EVENT DATE: 2017
